FAERS Safety Report 4687736-2 (Version None)
Quarter: 2005Q2

REPORT INFORMATION
  Report Type: 
  Country: None (occurrence: None)
  Receive Date: 20050610
  Receipt Date: 20050601
  Transmission Date: 20051028
  Serious: Yes (Other)
  Sender: FDA-Public Use
  Company Number: JP-SANOFI-SYNTHELABO-A01200503987

PATIENT
  Age: 44 Year
  Sex: Male

DRUGS (7)
  1. ZOLPIDEM [Suspect]
     Indication: DRUG USE FOR UNKNOWN INDICATION
     Dosage: 10 MG
     Route: 065
  2. ALPRAZOLAM [Suspect]
     Indication: DRUG USE FOR UNKNOWN INDICATION
     Dosage: 2.4 MG
     Route: 065
  3. ETIZOLAM [Suspect]
     Indication: DRUG USE FOR UNKNOWN INDICATION
     Dosage: 1.5 MG
     Route: 065
  4. TRIAZOLAM [Suspect]
     Indication: DRUG USE FOR UNKNOWN INDICATION
     Dosage: 0.5 MG
     Route: 065
  5. ESTAZOLAM [Suspect]
     Indication: DRUG USE FOR UNKNOWN INDICATION
     Dosage: 2 MG
     Route: 065
  6. BROTIZOLAM [Suspect]
     Indication: INSOMNIA
     Dosage: 0.25 MG
     Route: 065
  7. FLURAZEPAM [Suspect]
     Indication: DRUG USE FOR UNKNOWN INDICATION
     Dosage: 2 MG
     Route: 065

REACTIONS (2)
  - DELIRIUM [None]
  - DRUG WITHDRAWAL SYNDROME [None]
